FAERS Safety Report 6826681-0 (Version None)
Quarter: 2010Q3

REPORT INFORMATION
  Report Type: 
  Country: None (occurrence: None)
  Receive Date: 20100709
  Receipt Date: 20100628
  Transmission Date: 20110219
  Serious: Yes (Hospitalization)
  Sender: FDA-Public Use
  Company Number: FR-PFIZER INC-2010079961

PATIENT
  Age: 74 Year
  Sex: Female
  Weight: 83 kg

DRUGS (5)
  1. ALDACTONE [Suspect]
     Indication: HYPERTENSION
     Route: 048
  2. COVERSYL [Suspect]
     Dosage: 4 MG, 1X/DAY
     Route: 048
     Dates: start: 20090313, end: 20090318
  3. MEDIATENSYL [Concomitant]
     Indication: HYPERTENSION
     Route: 048
  4. VISKEN [Concomitant]
     Indication: HYPERTENSION
     Route: 048
  5. LERCAN [Concomitant]

REACTIONS (3)
  - HAEMATURIA [None]
  - PROTEINURIA [None]
  - RENAL FAILURE ACUTE [None]
